FAERS Safety Report 7206155-8 (Version None)
Quarter: 2010Q4

REPORT INFORMATION
  Report Type: 
  Country: None (occurrence: None)
  Receive Date: 20101221
  Receipt Date: 20101201
  Transmission Date: 20110411
  Serious: Yes (Hospitalization)
  Sender: FDA-Public Use
  Company Number: CIO10017149

PATIENT
  Sex: Male

DRUGS (1)
  1. PEPTO-BISMOL, FLAVOR UNKNOWN (BISMUTH SUBSALICYLATE 262 MG,CALCIUM CAR [Suspect]
     Dosage: 2 CHEWABLE TABLETS, 1 ONLY, ORAL
     Route: 048

REACTIONS (2)
  - FOREIGN BODY [None]
  - WRONG TECHNIQUE IN DRUG USAGE PROCESS [None]
